FAERS Safety Report 19105136 (Version 1)
Quarter: 2021Q2

REPORT INFORMATION
  Report Type: Spontaneous
  Country: US (occurrence: US)
  Receive Date: 20210408
  Receipt Date: 20210408
  Transmission Date: 20210717
  Serious: No
  Sender: FDA-Public Use
  Company Number: US-AIMMUNE THERAPEUTICS, INC.-2021AIMT00170

PATIENT

DRUGS (1)
  1. PALFORZIA [Suspect]
     Active Substance: PEANUT
     Indication: FOOD ALLERGY
     Dosage: 20 MG, 1X/DAY
     Route: 048
     Dates: start: 20201208

REACTIONS (2)
  - Abdominal pain upper [Not Recovered/Not Resolved]
  - Throat irritation [Not Recovered/Not Resolved]
